FAERS Safety Report 5297622-5 (Version None)
Quarter: 2007Q2

REPORT INFORMATION
  Report Type: 
  Country: None (occurrence: None)
  Receive Date: 20070416
  Receipt Date: 20070403
  Transmission Date: 20071010
  Serious: Yes (Other)
  Sender: FDA-Public Use
  Company Number: US-ROCHE-486007

PATIENT
  Age: 26 Year
  Sex: Female

DRUGS (4)
  1. ACCUTANE [Suspect]
     Route: 065
     Dates: start: 20060515, end: 20060615
  2. ACCUTANE [Suspect]
     Route: 065
     Dates: start: 20060615, end: 20060615
  3. ACCUTANE [Suspect]
     Route: 065
     Dates: start: 20060915, end: 20061215
  4. BIRTH CONTROL PILL [Concomitant]
     Dosage: TAKEN DAILY. FORM REPORTED AS ^PILL.^
     Route: 048

REACTIONS (3)
  - CERVICAL DYSPLASIA [None]
  - CERVICITIS [None]
  - UTERINE CERVICAL SQUAMOUS METAPLASIA [None]
